FAERS Safety Report 9441075 (Version 1)
Quarter: 2013Q3

REPORT INFORMATION
  Report Type: Spontaneous
  Country: GB (occurrence: None)
  Receive Date: 20130801
  Receipt Date: 20130801
  Transmission Date: 20140515
  Serious: Yes (Other)
  Sender: FDA-Public Use
  Company Number: AUR-APL-2013-06237

PATIENT
  Age: 26 Year
  Sex: Female

DRUGS (2)
  1. GABAPENTIN [Suspect]
     Indication: NEURALGIA
     Dosage: 600 MG ( 200 MG, 3 IN 1 D), ORAL
     Route: 048
     Dates: start: 200905
  2. REBIF [Suspect]
     Indication: MULTIPLE SCLEROSIS
     Dosage: 9.4286 MCG ( 22 MCG, 3 IN 1 WK ), SUBCUTANEOUS
     Route: 058
     Dates: start: 201205, end: 201303

REACTIONS (2)
  - Abortion induced [None]
  - Exposure during pregnancy [None]
